FAERS Safety Report 9006861 (Version 2)
Quarter: 2013Q1

REPORT INFORMATION
  Report Type: Spontaneous
  Country: US (occurrence: US)
  Receive Date: 20130110
  Receipt Date: 20130212
  Transmission Date: 20140127
  Serious: Yes (Other)
  Sender: FDA-Public Use
  Company Number: US-PFIZER INC-2013011631

PATIENT
  Sex: Female
  Weight: 71 kg

DRUGS (6)
  1. CHANTIX [Suspect]
     Indication: SMOKING CESSATION THERAPY
     Dosage: 0.5 MG, 1X/DAY
     Route: 048
  2. CHANTIX [Suspect]
     Dosage: UNK
     Route: 048
  3. ADVAIR [Concomitant]
     Indication: CHRONIC OBSTRUCTIVE PULMONARY DISEASE
     Dosage: UNK
  4. LEVOXYL [Concomitant]
     Indication: THYROID DISORDER
     Dosage: UNK
  5. NEURONTIN [Concomitant]
     Indication: SPINAL DISORDER
     Dosage: 600 MG, UNK
  6. MOBIC [Concomitant]
     Indication: ARTHRITIS
     Dosage: UNK

REACTIONS (4)
  - Mental impairment [Unknown]
  - Sedation [Unknown]
  - Feeling of relaxation [Unknown]
  - Drug ineffective [Unknown]
